FAERS Safety Report 5046862-9 (Version None)
Quarter: 2006Q2

REPORT INFORMATION
  Report Type: 
  Country: None (occurrence: None)
  Receive Date: 20060628
  Receipt Date: 20060503
  Transmission Date: 20061013
  Serious: Yes (Death)
  Sender: FDA-Public Use
  Company Number: HQWYE010413APR05

PATIENT
  Age: 44 Year
  Sex: Male

DRUGS (8)
  1. RAPAMUNE [Suspect]
     Indication: PROPHYLAXIS AGAINST TRANSPLANT REJECTION
     Dates: start: 20050112
  2. PREDNISONE [Concomitant]
  3. CYCLOSPORINE [Concomitant]
  4. NIFEDIPINE [Concomitant]
  5. DIGOXIN [Concomitant]
  6. SULFAMETHOXAZOLE + TRIMETHOPRIM [Concomitant]
  7. FUROSEMIDE [Concomitant]
  8. GLIBENCLAMIDE [Concomitant]

REACTIONS (1)
  - DEATH [None]
